FAERS Safety Report 8183539-5 (Version None)
Quarter: 2012Q1

REPORT INFORMATION
  Report Type: 
  Country: None (occurrence: None)
  Receive Date: 20120130
  Receipt Date: 20110727
  Transmission Date: 20120608
  Serious: Yes (Other)
  Sender: FDA-Public Use
  Company Number: 037991

PATIENT
  Age: 52 Year
  Sex: Female
  Weight: 55.8 kg

DRUGS (2)
  1. KEPPRA [Suspect]
     Indication: GRAND MAL CONVULSION
     Dates: start: 20101001, end: 20110501
  2. DILANTIN [Suspect]
     Indication: GRAND MAL CONVULSION
     Dosage: 100 MG TID ORAL
     Route: 048
     Dates: start: 19770101, end: 20101001

REACTIONS (5)
  - CONVULSION [None]
  - FALL [None]
  - SPINAL FRACTURE [None]
  - DRUG INEFFECTIVE [None]
  - WEIGHT INCREASED [None]
